FAERS Safety Report 16501552 (Version 1)
Quarter: 2019Q3

REPORT INFORMATION
  Report Type: Other
  Country: None (occurrence: IL)
  Receive Date: 20190701
  Receipt Date: 20190701
  Transmission Date: 20191004
  Serious: Yes (Life-Threatening)
  Sender: FDA-Public Use
  Company Number: IL-TARO PHARMACEUTICALS USA.,INC-2019SUN00301

PATIENT
  Age: 20 Year
  Sex: Male

DRUGS (1)
  1. ETOPAN [Suspect]
     Active Substance: ETODOLAC
     Indication: PAIN
     Dosage: UNK
     Route: 065

REACTIONS (1)
  - Drug reaction with eosinophilia and systemic symptoms [Unknown]
